FAERS Safety Report 9885090 (Version 1)
Quarter: 2014Q1

REPORT INFORMATION
  Report Type: Spontaneous
  Country: US (occurrence: US)
  Receive Date: 20140210
  Receipt Date: 20140210
  Transmission Date: 20141002
  Serious: Yes (Death)
  Sender: FDA-Public Use
  Company Number: US-OTSUKA-US-2014-10181

PATIENT
  Sex: 0

DRUGS (6)
  1. BUSULFEX [Suspect]
     Indication: STEM CELL TRANSPLANT
     Dosage: 130 MG/M2, QD
     Route: 042
  2. FLUDARABINE [Suspect]
     Indication: STEM CELL TRANSPLANT
     Dosage: 40 MG/M2, DAILY DOSE
  3. TACROLIMUS [Concomitant]
     Indication: PROPHYLAXIS AGAINST GRAFT VERSUS HOST DISEASE
  4. METHOTREXATE [Concomitant]
     Indication: PROPHYLAXIS AGAINST GRAFT VERSUS HOST DISEASE
     Dosage: 05 MG/M2, UNK
     Route: 065
  5. PHENYTOIN [Concomitant]
     Dosage: 300 MG MILLIGRAM(S), UNKNOWN
     Route: 048
  6. FILGRASTIM [Concomitant]
     Dosage: 5 ?G/KG, DAILY DOSE
     Route: 058

REACTIONS (4)
  - Death [Fatal]
  - Cytokine release syndrome [Fatal]
  - Pulmonary haemorrhage [Fatal]
  - Off label use [Unknown]
